FAERS Safety Report 4464097-5 (Version None)
Quarter: 2004Q4

REPORT INFORMATION
  Report Type: 
  Country: None (occurrence: None)
  Receive Date: 20041001
  Receipt Date: 20040826
  Transmission Date: 20050328
  Serious: Yes (Death, Hospitalization)
  Sender: FDA-Public Use
  Company Number: GB-MERCK-0408USA02143

PATIENT
  Age: 84 Year
  Sex: Male

DRUGS (10)
  1. ASPIRIN [Concomitant]
     Route: 065
  2. DOTHIEPIN HYDROCHLORIDE [Concomitant]
     Route: 065
  3. FLUOXETINE [Concomitant]
     Route: 065
  4. GLICLAZIDE [Concomitant]
     Indication: DIABETES MELLITUS NON-INSULIN-DEPENDENT
     Route: 048
  5. LEVOTHYROXINE SODIUM [Concomitant]
     Route: 065
  6. PRINIVIL [Suspect]
     Route: 048
  7. METFORMIN [Suspect]
     Indication: DIABETES MELLITUS NON-INSULIN-DEPENDENT
     Route: 048
  8. RABEPRAZOLE SODIUM [Concomitant]
     Route: 065
  9. ROSIGLITAZONE MALEATE [Suspect]
     Indication: DIABETES MELLITUS NON-INSULIN-DEPENDENT
     Route: 048
     Dates: start: 20030901
  10. ROSIGLITAZONE MALEATE [Suspect]
     Route: 048
     Dates: start: 20000101

REACTIONS (12)
  - CARDIAC FAILURE CONGESTIVE [None]
  - CREPITATIONS [None]
  - FLUID OVERLOAD [None]
  - HEPATOCELLULAR DAMAGE [None]
  - HEPATOMEGALY [None]
  - ISCHAEMIC HEPATITIS [None]
  - LACTIC ACIDOSIS [None]
  - LOWER RESPIRATORY TRACT INFECTION [None]
  - MALAISE [None]
  - PLEURAL EFFUSION [None]
  - RENAL IMPAIRMENT [None]
  - TACHYPNOEA [None]
